FAERS Safety Report 25466288 (Version 3)
Quarter: 2025Q3

REPORT INFORMATION
  Report Type: Report from Study
  Country: US (occurrence: US)
  Receive Date: 20250623
  Receipt Date: 20250821
  Transmission Date: 20251021
  Serious: Yes (Other)
  Sender: TAKEDA
  Company Number: US-TAKEDA-2025TUS053688

PATIENT
  Age: 58 Year
  Sex: Female
  Weight: 75 kg

DRUGS (3)
  1. VEDOLIZUMAB [Suspect]
     Active Substance: VEDOLIZUMAB
     Indication: Crohn^s disease
  2. VEDOLIZUMAB [Suspect]
     Active Substance: VEDOLIZUMAB
     Indication: Crohn^s disease
     Dosage: 108 MILLIGRAM, Q2WEEKS
     Dates: start: 20250530
  3. VEDOLIZUMAB [Suspect]
     Active Substance: VEDOLIZUMAB
     Dosage: 108 MILLIGRAM, Q2WEEKS

REACTIONS (6)
  - Crohn^s disease [Unknown]
  - Wrong technique in product usage process [Unknown]
  - Product dose omission issue [Recovered/Resolved]
  - Injection site extravasation [Unknown]
  - Incorrect dose administered [Unknown]
  - Device defective [Recovered/Resolved]

NARRATIVE: CASE EVENT DATE: 20250530
